FAERS Safety Report 23629617 (Version 1)
Quarter: 2024Q1

REPORT INFORMATION
  Report Type: Spontaneous
  Country: CN (occurrence: CN)
  Receive Date: 20240314
  Receipt Date: 20240314
  Transmission Date: 20240410
  Serious: Yes (Hospitalization)
  Sender: FDA-Public Use
  Company Number: CN-JNJFOC-20240315669

PATIENT
  Age: 68 Year
  Sex: Female
  Weight: 52 kg

DRUGS (2)
  1. DARZALEX [Suspect]
     Active Substance: DARATUMUMAB
     Indication: Plasma cell myeloma
     Dosage: 20ML;400MG
     Route: 041
     Dates: start: 20240217, end: 20240217
  2. SODIUM CHLORIDE [Concomitant]
     Active Substance: SODIUM CHLORIDE
     Indication: Plasma cell myeloma
     Route: 041
     Dates: start: 20240217, end: 20240304

REACTIONS (2)
  - Drug-induced liver injury [Not Recovered/Not Resolved]
  - Transaminases increased [Unknown]

NARRATIVE: CASE EVENT DATE: 20240304
